FAERS Safety Report 9392356 (Version 1)
Quarter: 2013Q3

REPORT INFORMATION
  Report Type: Spontaneous
  Country: US (occurrence: None)
  Receive Date: 20130708
  Receipt Date: 20130708
  Transmission Date: 20140515
  Serious: Yes (Death)
  Sender: FDA-Public Use
  Company Number: None

PATIENT
  Age: 26 Year
  Sex: Male
  Weight: 49.44 kg

DRUGS (1)
  1. LISINOPRIL [Suspect]
     Indication: HYPERTENSION
     Dosage: - HALF A TAB -
     Route: 048
     Dates: start: 20130621, end: 20130702

REACTIONS (3)
  - Resuscitation [None]
  - Loss of consciousness [None]
  - Respiratory arrest [None]
